FAERS Safety Report 14789638 (Version 2)
Quarter: 2018Q2

REPORT INFORMATION
  Report Type: Spontaneous
  Country: US (occurrence: US)
  Receive Date: 20180423
  Receipt Date: 20180528
  Transmission Date: 20180711
  Serious: Yes (Other)
  Sender: FDA-Public Use
  Company Number: PHEH2018US014830

PATIENT
  Age: 57 Year
  Sex: Female
  Weight: 62.6 kg

DRUGS (4)
  1. GILENYA [Suspect]
     Active Substance: FINGOLIMOD HYDROCHLORIDE
     Dosage: 0.5 MG, QOD
     Route: 048
  2. OLMESARTAN [Concomitant]
     Active Substance: OLMESARTAN
     Indication: PRODUCT USED FOR UNKNOWN INDICATION
     Dosage: UNK
     Route: 065
  3. GILENYA [Suspect]
     Active Substance: FINGOLIMOD HYDROCHLORIDE
     Indication: RELAPSING-REMITTING MULTIPLE SCLEROSIS
     Dosage: UNK
     Route: 065
  4. HYDROCHLOROTHIAZIDE. [Concomitant]
     Active Substance: HYDROCHLOROTHIAZIDE
     Indication: PRODUCT USED FOR UNKNOWN INDICATION
     Dosage: UNK
     Route: 065

REACTIONS (12)
  - Influenza [Unknown]
  - Balance disorder [Unknown]
  - Fatigue [Unknown]
  - Decreased immune responsiveness [Unknown]
  - Prescribed underdose [Unknown]
  - Nocturia [Unknown]
  - Optic neuritis [Recovered/Resolved]
  - Lymphocyte count decreased [Recovering/Resolving]
  - Cryptococcal cutaneous infection [Unknown]
  - Leukopenia [Unknown]
  - Pollakiuria [Unknown]
  - Skin lesion [Unknown]

NARRATIVE: CASE EVENT DATE: 201704
